FAERS Safety Report 15478530 (Version 1)
Quarter: 2018Q4

REPORT INFORMATION
  Report Type: Spontaneous
  Country: US (occurrence: US)
  Receive Date: 20181009
  Receipt Date: 20181009
  Transmission Date: 20190205
  Serious: Yes (Hospitalization)
  Sender: FDA-Public Use
  Company Number: US-BRISTOL-MYERS SQUIBB COMPANY-BMS-2018-093544

PATIENT
  Sex: Female
  Weight: 62.59 kg

DRUGS (1)
  1. OPDIVO [Suspect]
     Active Substance: NIVOLUMAB
     Indication: RECTAL CANCER METASTATIC
     Dosage: 240 MG, Q2WK
     Route: 042
     Dates: start: 20180808

REACTIONS (1)
  - Infection [Unknown]
